FAERS Safety Report 5776088-2 (Version None)
Quarter: 2008Q2

REPORT INFORMATION
  Report Type: 
  Country: None (occurrence: None)
  Receive Date: 20080613
  Receipt Date: 20080529
  Transmission Date: 20081010
  Serious: Yes (Life-Threatening)
  Sender: FDA-Public Use
  Company Number: TPH-00048

PATIENT
  Age: 32 Year
  Sex: Female

DRUGS (1)
  1. TRIQUILAR 28 [Suspect]
     Indication: ORAL CONTRACEPTION
     Dosage: 1 DF ORAL
     Route: 048
     Dates: start: 20021015, end: 20070829

REACTIONS (1)
  - HYPERTENSIVE ENCEPHALOPATHY [None]
